FAERS Safety Report 5093932-5 (Version None)
Quarter: 2006Q3

REPORT INFORMATION
  Report Type: 
  Country: None (occurrence: None)
  Receive Date: 20060829
  Receipt Date: 20060816
  Transmission Date: 20061208
  Serious: Yes (Death, Hospitalization, Other)
  Sender: FDA-Public Use
  Company Number: 2006099803

PATIENT
  Age: 70 Year
  Sex: Male

DRUGS (6)
  1. SUTENT [Suspect]
     Indication: RENAL CELL CARCINOMA STAGE UNSPECIFIED
     Dosage: 50 MG (50 MG, EVERY DAY), ORAL
     Route: 048
     Dates: start: 20060712, end: 20060805
  2. CLODRONATE DISODIUM (CLODRONATE DISODIUM) [Concomitant]
  3. DEXAMETHASONE TAB [Concomitant]
  4. DOXAZOSIN (DOXAZOSIN) [Concomitant]
  5. OMEPRADEX (OMEPRAZOLE) [Concomitant]
  6. OXYCONTIN [Concomitant]

REACTIONS (5)
  - DEHYDRATION [None]
  - DIALYSIS [None]
  - METASTATIC NEOPLASM [None]
  - RENAL FAILURE ACUTE [None]
  - VOMITING [None]
